FAERS Safety Report 8565771 (Version 2)
Quarter: 2013Q4

REPORT INFORMATION
  Report Type: Spontaneous
  Country: FR (occurrence: FR)
  Receive Date: 20120516
  Receipt Date: 20131025
  Transmission Date: 20140711
  Serious: Yes (Death, Hospitalization)
  Sender: FDA-Public Use
  Company Number: FR-B.I. PHARMACEUTICALS,INC./RIDGEFIELD-2012-FF-00555FF

PATIENT
  Age: 71 Year
  Sex: Female

DRUGS (6)
  1. PRADAXA [Suspect]
     Indication: ATRIAL FIBRILLATION
     Dosage: 110 MG
     Route: 048
     Dates: start: 20120414, end: 20120414
  2. KARDEGIC [Suspect]
     Route: 048
     Dates: end: 20120413
  3. ADANCOR [Concomitant]
  4. PRAVASTATINE [Concomitant]
  5. CORDARONE [Concomitant]
  6. LEVOTHYROX [Concomitant]

REACTIONS (1)
  - Haemorrhagic stroke [Fatal]
